FAERS Safety Report 9320508 (Version 1)
Quarter: 2013Q2

REPORT INFORMATION
  Report Type: Spontaneous
  Country: AU (occurrence: AU)
  Receive Date: 20130530
  Receipt Date: 20130530
  Transmission Date: 20140414
  Serious: Yes (Death)
  Sender: FDA-Public Use
  Company Number: AU-MYLANLABS-2013S1011153

PATIENT
  Age: 26 Year
  Sex: Male

DRUGS (1)
  1. VENLAFAXINE [Suspect]
     Indication: DEPRESSION
     Route: 065

REACTIONS (4)
  - Completed suicide [Fatal]
  - Suicidal ideation [Fatal]
  - Dysphoria [Not Recovered/Not Resolved]
  - Restlessness [Not Recovered/Not Resolved]
